FAERS Safety Report 6146846-3 (Version None)
Quarter: 2009Q2

REPORT INFORMATION
  Report Type: 
  Country: None (occurrence: None)
  Receive Date: 20090407
  Receipt Date: 20090327
  Transmission Date: 20091009
  Serious: Yes (Death, Hospitalization, Other)
  Sender: FDA-Public Use
  Company Number: JP-BAXTER-2009BH004801

PATIENT
  Age: 57 Year
  Sex: Female

DRUGS (10)
  1. ENDOXAN BAXTER [Suspect]
     Indication: GLOMERULONEPHRITIS RAPIDLY PROGRESSIVE
     Route: 048
     Dates: start: 20080917, end: 20090123
  2. BAKTAR [Suspect]
     Indication: PNEUMOCYSTIS JIROVECI PNEUMONIA
     Route: 048
     Dates: start: 20081002, end: 20090123
  3. PREDONINE [Suspect]
     Indication: GLOMERULONEPHRITIS RAPIDLY PROGRESSIVE
     Route: 048
     Dates: start: 20090123, end: 20090127
  4. PREDONINE [Suspect]
     Route: 048
     Dates: start: 20081226, end: 20090123
  5. PREDONINE [Suspect]
     Route: 048
     Dates: start: 20080917, end: 20081226
  6. PERSANTINE [Suspect]
     Indication: GLOMERULONEPHRITIS RAPIDLY PROGRESSIVE
     Route: 048
     Dates: start: 20080917, end: 20090127
  7. TAKEPRON [Suspect]
     Indication: PROPHYLAXIS AGAINST GASTROINTESTINAL ULCER
     Route: 048
     Dates: start: 20080905, end: 20090123
  8. POLAPREZINC [Suspect]
     Indication: PROPHYLAXIS AGAINST GASTROINTESTINAL ULCER
     Route: 048
     Dates: start: 20080905, end: 20090127
  9. DEPAS [Suspect]
     Indication: ANXIOLYTIC THERAPY
     Route: 048
     Dates: start: 20080921, end: 20090127
  10. MICARDIS [Suspect]
     Indication: GLOMERULONEPHRITIS RAPIDLY PROGRESSIVE
     Route: 048
     Dates: start: 20081107, end: 20090127

REACTIONS (21)
  - BACTERIA URINE IDENTIFIED [None]
  - CANDIDIASIS [None]
  - DISSEMINATED INTRAVASCULAR COAGULATION [None]
  - ENTEROCOCCAL INFECTION [None]
  - ERYTHEMA MULTIFORME [None]
  - HEPATIC FUNCTION ABNORMAL [None]
  - HERPES VIRUS INFECTION [None]
  - HYPOALBUMINAEMIA [None]
  - IMMUNE SYSTEM DISORDER [None]
  - LUNG DISORDER [None]
  - MULTI-ORGAN FAILURE [None]
  - MYCOPLASMA INFECTION [None]
  - OFF LABEL USE [None]
  - PANCYTOPENIA [None]
  - PLEURAL EFFUSION [None]
  - RENAL IMPAIRMENT [None]
  - STEVENS-JOHNSON SYNDROME [None]
  - STREPTOCOCCAL INFECTION [None]
  - TOXIC EPIDERMAL NECROLYSIS [None]
  - URINE OUTPUT DECREASED [None]
  - VIRAL INFECTION [None]
